FAERS Safety Report 8508936-7 (Version None)
Quarter: 2012Q3

REPORT INFORMATION
  Report Type: 
  Country: None (occurrence: None)
  Receive Date: 20120713
  Receipt Date: 20120706
  Transmission Date: 20120928
  Serious: Yes (Other)
  Sender: FDA-Public Use
  Company Number: FR-JNJFOC-20120704149

PATIENT
  Age: 48 Year
  Sex: Male

DRUGS (4)
  1. RISPERDAL [Suspect]
     Route: 048
     Dates: start: 20120515, end: 20120604
  2. RISPERDAL [Suspect]
     Indication: PRODUCT USED FOR UNKNOWN INDICATION
     Route: 048
     Dates: start: 20120605, end: 20120619
  3. RISPERDAL [Suspect]
     Route: 048
     Dates: start: 20120620, end: 20120628
  4. LEVOTHYROXINE SODIUM [Concomitant]
     Indication: THYROIDITIS
     Route: 065
     Dates: start: 20120401

REACTIONS (1)
  - GAMMA-GLUTAMYLTRANSFERASE INCREASED [None]
